FAERS Safety Report 10652871 (Version 1)
Quarter: 2014Q4

REPORT INFORMATION
  Report Type: Spontaneous
  Country: US (occurrence: US)
  Receive Date: 20141215
  Receipt Date: 20141215
  Transmission Date: 20150529
  Serious: No
  Sender: FDA-Public Use
  Company Number: US-TEVA-527703USA

PATIENT
  Sex: Female

DRUGS (1)
  1. NUVIGIL [Suspect]
     Active Substance: ARMODAFINIL
     Indication: CHRONIC FATIGUE SYNDROME

REACTIONS (4)
  - Insomnia [Unknown]
  - Chronic fatigue syndrome [Unknown]
  - Fatigue [Unknown]
  - Product use issue [Unknown]
